FAERS Safety Report 19177954 (Version 1)
Quarter: 2021Q2

REPORT INFORMATION
  Report Type: Spontaneous
  Country: US (occurrence: US)
  Receive Date: 20210426
  Receipt Date: 20210426
  Transmission Date: 20210717
  Serious: Yes (Hospitalization, Other)
  Sender: FDA-Public Use
  Company Number: US-MTPC-MTDA2021-0010043

PATIENT

DRUGS (2)
  1. RADICAVA [Suspect]
     Active Substance: EDARAVONE
     Dosage: 60 MILLIGRAM QD FOR 10 DAYS OUT OF 14?DAY PERIODS, FOLLOWED BY 14?DAY DRUG?FREE PERIODS
     Route: 042
     Dates: end: 20210331
  2. RADICAVA [Suspect]
     Active Substance: EDARAVONE
     Indication: AMYOTROPHIC LATERAL SCLEROSIS
     Dosage: 60 MILLIGRAM OVER 60 MINS QD FOR 14 DAYS, FOLLOWED BY 14?DAY DRUG?FREE PERIODS
     Route: 042

REACTIONS (2)
  - Adverse event [Recovering/Resolving]
  - Pneumonia [Recovering/Resolving]
